FAERS Safety Report 9491054 (Version 1)
Quarter: 2013Q3

REPORT INFORMATION
  Report Type: Spontaneous
  Country: US (occurrence: US)
  Receive Date: 20130830
  Receipt Date: 20130830
  Transmission Date: 20140515
  Serious: Yes (Hospitalization)
  Sender: FDA-Public Use
  Company Number: US-JNJFOC-20130812635

PATIENT
  Sex: Male

DRUGS (2)
  1. ZYTIGA [Suspect]
     Indication: PROSTATE CANCER
     Dosage: 250 MG X 4 TABLETS
     Route: 048
     Dates: start: 201306, end: 2013
  2. OXYCONTIN [Concomitant]
     Indication: PAIN
     Route: 048

REACTIONS (9)
  - Immune system disorder [Unknown]
  - Blood count abnormal [Unknown]
  - Fat tissue increased [Not Recovered/Not Resolved]
  - Infection [Unknown]
  - Weight decreased [Not Recovered/Not Resolved]
  - Inappropriate schedule of drug administration [Recovered/Resolved]
  - Musculoskeletal stiffness [Not Recovered/Not Resolved]
  - Haemorrhage [Not Recovered/Not Resolved]
  - Back pain [Not Recovered/Not Resolved]
